FAERS Safety Report 4623633-6 (Version None)
Quarter: 2005Q2

REPORT INFORMATION
  Report Type: 
  Country: None (occurrence: None)
  Receive Date: 20050325
  Receipt Date: 20050119
  Transmission Date: 20051028
  Serious: No
  Sender: FDA-Public Use
  Company Number: USA041080647

PATIENT
  Age: 75 Year
  Sex: Female
  Weight: 28 kg

DRUGS (16)
  1. FORTEO [Suspect]
     Indication: OSTEOPOROSIS
     Dosage: 20 UG DAY
     Dates: start: 20040930, end: 20041012
  2. CALTRATE (CALCIUM CARBONATE) [Concomitant]
  3. VITAMIN D [Concomitant]
  4. MAGNESIUM [Concomitant]
  5. LEVAQUIN [Concomitant]
  6. ALBUTEROL [Concomitant]
  7. LEVOXYL [Concomitant]
  8. ESTRACE [Concomitant]
  9. VITAMINS NOS [Concomitant]
  10. TOBRAMYCIN [Concomitant]
  11. CIPRO [Concomitant]
  12. PREDNISONE TAB [Concomitant]
  13. AMBIEN [Concomitant]
  14. PULMOCORTISON INY [Concomitant]
  15. VITAMIN E [Concomitant]
  16. ASACOL [Concomitant]

REACTIONS (16)
  - ABDOMINAL PAIN [None]
  - BACK PAIN [None]
  - BONE PAIN [None]
  - CRYING [None]
  - DIARRHOEA [None]
  - DISCOMFORT [None]
  - DRUG INTERACTION [None]
  - FEAR [None]
  - HEADACHE [None]
  - INJECTION SITE DERMATITIS [None]
  - INJECTION SITE ERYTHEMA [None]
  - INJECTION SITE IRRITATION [None]
  - MEMORY IMPAIRMENT [None]
  - PAIN [None]
  - PAIN IN EXTREMITY [None]
  - PARANASAL SINUS HYPERSECRETION [None]
